FAERS Safety Report 23325132 (Version 3)
Quarter: 2025Q1

REPORT INFORMATION
  Report Type: Spontaneous
  Country: AT (occurrence: AT)
  Receive Date: 20231221
  Receipt Date: 20250313
  Transmission Date: 20250409
  Serious: No
  Sender: UCB
  Company Number: AT-UCBSA-2023059544

PATIENT
  Sex: Female

DRUGS (2)
  1. NEUPRO [Suspect]
     Active Substance: ROTIGOTINE
     Indication: Restless legs syndrome
     Dosage: 1 MILLIGRAM, ONCE DAILY (QD)
     Route: 062
     Dates: start: 2013
  2. NEUPRO [Suspect]
     Active Substance: ROTIGOTINE
     Dosage: 2 MILLIGRAM, ONCE DAILY (QD)
     Route: 062

REACTIONS (4)
  - Therapeutic product ineffective [Unknown]
  - Product quality issue [Unknown]
  - Product packaging quantity issue [Unknown]
  - Off label use [Unknown]
